FAERS Safety Report 15681972 (Version 3)
Quarter: 2018Q4

REPORT INFORMATION
  Report Type: Spontaneous
  Country: GB (occurrence: GB)
  Receive Date: 20181203
  Receipt Date: 20181204
  Transmission Date: 20190205
  Serious: Yes (Hospitalization, Other)
  Sender: FDA-Public Use
  Company Number: PHHY2018GB166511

PATIENT
  Age: 48 Year
  Sex: Female

DRUGS (2)
  1. FLUORESCEIN SODIUM. [Suspect]
     Active Substance: FLUORESCEIN SODIUM
     Indication: OPHTHALMIC SCAN
     Dosage: UNK
     Route: 042
     Dates: start: 20181025, end: 20181025
  2. CANDESARTAN. [Concomitant]
     Active Substance: CANDESARTAN
     Indication: PRODUCT USED FOR UNKNOWN INDICATION
     Dosage: UNK
     Route: 065

REACTIONS (5)
  - Erythema [Recovered/Resolved]
  - Pain in extremity [Recovered/Resolved]
  - Pharyngeal oedema [Recovered/Resolved]
  - Generalised erythema [Recovered/Resolved]
  - Anaphylactic reaction [Recovered/Resolved]

NARRATIVE: CASE EVENT DATE: 20181025
